FAERS Safety Report 21445487 (Version 1)
Quarter: 2022Q4

REPORT INFORMATION
  Report Type: Spontaneous
  Country: GB (occurrence: GB)
  Receive Date: 20221012
  Receipt Date: 20221012
  Transmission Date: 20230113
  Serious: Yes (Other)
  Sender: FDA-Public Use
  Company Number: None

PATIENT
  Sex: Female

DRUGS (1)
  1. DOTAREM [Suspect]
     Active Substance: GADOTERATE MEGLUMINE
     Indication: Magnetic resonance imaging
     Dosage: 15 UNITS ONE TIME FOR MRI CONTRAST STUDY
     Route: 065
     Dates: start: 20220929, end: 20220929

REACTIONS (4)
  - Rash [Recovered/Resolved]
  - Erythema [Recovered/Resolved]
  - Hypoaesthesia oral [Recovered/Resolved]
  - Swelling [Recovered/Resolved]

NARRATIVE: CASE EVENT DATE: 20220929
